FAERS Safety Report 10273516 (Version 1)
Quarter: 2014Q3

REPORT INFORMATION
  Report Type: Spontaneous
  Country: US (occurrence: US)
  Receive Date: 20140702
  Receipt Date: 20140702
  Transmission Date: 20150326
  Serious: No
  Sender: FDA-Public Use
  Company Number: US-ASTRAZENECA-2014SE45817

PATIENT
  Age: 67 Year
  Sex: Female
  Weight: 52.6 kg

DRUGS (1)
  1. SYMBICORT [Suspect]
     Active Substance: BUDESONIDE\FORMOTEROL FUMARATE DIHYDRATE
     Indication: ASTHMA
     Dosage: 320-9MCG BID
     Route: 055
     Dates: start: 2014, end: 20140619

REACTIONS (5)
  - Emotional distress [Unknown]
  - Dyspnoea [Recovering/Resolving]
  - Asthma [Recovered/Resolved]
  - Dyspnoea [Unknown]
  - Anxiety [Recovering/Resolving]

NARRATIVE: CASE EVENT DATE: 2014
